FAERS Safety Report 9560727 (Version 1)
Quarter: 2013Q3

REPORT INFORMATION
  Report Type: Spontaneous
  Country: CN (occurrence: CN)
  Receive Date: 20130927
  Receipt Date: 20130927
  Transmission Date: 20140515
  Serious: Yes (Other)
  Sender: FDA-Public Use
  Company Number: CN-BAYER-2013-112874

PATIENT
  Sex: Female

DRUGS (1)
  1. GLUCOBAY [Suspect]
     Dosage: 2 DF, TID
     Route: 048

REACTIONS (1)
  - Unevaluable event [None]
